FAERS Safety Report 20724967 (Version 1)
Quarter: 2022Q2

REPORT INFORMATION
  Report Type: Spontaneous
  Country: US (occurrence: None)
  Receive Date: 20220418
  Receipt Date: 20220418
  Transmission Date: 20220721
  Serious: Yes (Other)
  Sender: FDA-Public Use
  Company Number: None

PATIENT
  Age: 56 Year
  Sex: Female
  Weight: 59.85 kg

DRUGS (7)
  1. BELBUCA [Suspect]
     Active Substance: BUPRENORPHINE HYDROCHLORIDE
     Indication: Pain
     Dosage: OTHER STRENGTH : MCG;?OTHER QUANTITY : 60 60 PER BOX;?FREQUENCY : TWICE A DAY;?OTHER ROUTE : PUT IN
     Route: 050
     Dates: start: 20210101, end: 20220223
  2. OXYCODONE [Concomitant]
     Active Substance: OXYCODONE
  3. CLONAZEPAM [Concomitant]
     Active Substance: CLONAZEPAM
  4. SEROQUEL [Concomitant]
     Active Substance: QUETIAPINE FUMARATE
  5. MAGNESIUM [Concomitant]
     Active Substance: MAGNESIUM
  6. HERBALS\TURMERIC [Concomitant]
     Active Substance: HERBALS\TURMERIC
  7. VITAMIN D [Concomitant]
     Active Substance: VITAMIN D NOS

REACTIONS (3)
  - Dental caries [None]
  - Product use complaint [None]
  - Artificial crown procedure [None]

NARRATIVE: CASE EVENT DATE: 20220223
